FAERS Safety Report 9860096 (Version 2)
Quarter: 2014Q1

REPORT INFORMATION
  Report Type: Spontaneous
  Country: JP (occurrence: JP)
  Receive Date: 20140201
  Receipt Date: 20140310
  Transmission Date: 20141002
  Serious: Yes (Death, Other)
  Sender: FDA-Public Use
  Company Number: JP-ROCHE-1340084

PATIENT
  Age: 58 Year
  Sex: Female

DRUGS (4)
  1. CELLCEPT [Suspect]
     Indication: PROPHYLAXIS AGAINST TRANSPLANT REJECTION
     Dosage: DOSAGE IS UNCERTAIN.
     Route: 048
  2. CICLOSPORIN [Suspect]
     Indication: PROPHYLAXIS AGAINST TRANSPLANT REJECTION
     Dosage: DOSAGE IS UNCERTAIN.
     Route: 065
  3. EPIRUBICIN HYDROCHLORIDE [Suspect]
     Indication: HEPATOCELLULAR CARCINOMA
     Dosage: DOSAGE IS UNCERTAIN.
     Route: 013
  4. LIPIODOL [Suspect]
     Indication: HEPATOCELLULAR CARCINOMA
     Dosage: RECURRENT MALIGNANT HEPATOMA
     Route: 013

REACTIONS (3)
  - Hepatocellular carcinoma [Fatal]
  - Metastases to lung [Fatal]
  - Hepatitis B [Unknown]
